FAERS Safety Report 15821329 (Version 5)
Quarter: 2022Q3

REPORT INFORMATION
  Report Type: Report from Study
  Country: CA (occurrence: CA)
  Receive Date: 20190114
  Receipt Date: 20220822
  Transmission Date: 20221027
  Serious: Yes (Death, Hospitalization, Other)
  Sender: FDA-Public Use
  Company Number: CA-PFIZER INC-2019014979

PATIENT
  Age: 62 Year
  Sex: Female

DRUGS (14)
  1. DOCETAXEL [Suspect]
     Active Substance: DOCETAXEL
     Indication: Breast cancer
     Dosage: 174 MG, EVERY 3 WEEKS
     Route: 042
     Dates: start: 2011
  2. EPIRUBICIN HYDROCHLORIDE [Suspect]
     Active Substance: EPIRUBICIN HYDROCHLORIDE
     Indication: Breast cancer
     Dosage: 170 IU, UNK
     Route: 065
     Dates: start: 2011, end: 2011
  3. EPIRUBICIN HYDROCHLORIDE [Suspect]
     Active Substance: EPIRUBICIN HYDROCHLORIDE
     Dosage: 170 IU, UNK
     Route: 065
     Dates: start: 2011, end: 2011
  4. EPIRUBICIN HYDROCHLORIDE [Suspect]
     Active Substance: EPIRUBICIN HYDROCHLORIDE
     Dosage: 170 IU, UNK
     Route: 065
     Dates: start: 2011
  5. FLUOROURACIL [Suspect]
     Active Substance: FLUOROURACIL
     Indication: Breast cancer
     Dosage: 870 IU, UNK
     Route: 065
     Dates: start: 2011, end: 2011
  6. FLUOROURACIL [Suspect]
     Active Substance: FLUOROURACIL
     Dosage: 870 IU, UNK
     Route: 065
     Dates: start: 2011, end: 2011
  7. FLUOROURACIL [Suspect]
     Active Substance: FLUOROURACIL
     Dosage: 870 IU, UNK
     Route: 065
     Dates: start: 2011
  8. CYCLOPHOSPHAMIDE [Suspect]
     Active Substance: CYCLOPHOSPHAMIDE
     Indication: Breast cancer
     Dosage: 870 IU, UNK
     Route: 065
     Dates: start: 2011, end: 2011
  9. CYCLOPHOSPHAMIDE [Suspect]
     Active Substance: CYCLOPHOSPHAMIDE
     Dosage: 870 IU, UNK
     Route: 065
     Dates: start: 2011, end: 2011
  10. CYCLOPHOSPHAMIDE [Suspect]
     Active Substance: CYCLOPHOSPHAMIDE
     Dosage: 870 IU, UNK
     Route: 065
  11. CASPOFUNGIN ACETATE [Concomitant]
     Active Substance: CASPOFUNGIN ACETATE
     Indication: Product use in unapproved indication
     Dosage: UNK
  12. GRANULOCYTE COLONY-STIMULATING FACTOR NOS [Concomitant]
     Active Substance: GRANULOCYTE COLONY-STIMULATING FACTOR NOS
     Indication: Product use in unapproved indication
     Dosage: UNK
  13. MEROPENEM [Concomitant]
     Active Substance: MEROPENEM
     Indication: Product use in unapproved indication
     Dosage: UNK
  14. VANCOMYCIN HYDROCHLORIDE [Concomitant]
     Active Substance: VANCOMYCIN HYDROCHLORIDE
     Indication: Product use in unapproved indication
     Dosage: UNK

REACTIONS (13)
  - Death [Fatal]
  - Abscess [Fatal]
  - Febrile neutropenia [Fatal]
  - Gas gangrene [Fatal]
  - Gastritis [Fatal]
  - Ischaemic enteritis [Fatal]
  - Peritonitis [Fatal]
  - Renal failure [Fatal]
  - Sepsis [Fatal]
  - Gastrointestinal necrosis [Fatal]
  - Large intestine perforation [Fatal]
  - Abdominal pain [Fatal]
  - Acidosis [Fatal]
